FAERS Safety Report 12275046 (Version 1)
Quarter: 2016Q2

REPORT INFORMATION
  Report Type: Spontaneous
  Country: US (occurrence: US)
  Receive Date: 20160415
  Receipt Date: 20160415
  Transmission Date: 20160815
  Serious: No
  Sender: FDA-Public Use
  Company Number: US-ALLERGAN-1523807US

PATIENT
  Age: 35 Year
  Sex: Female
  Weight: 86.17 kg

DRUGS (1)
  1. LATISSE [Suspect]
     Active Substance: BIMATOPROST
     Indication: GROWTH OF EYELASHES
     Dosage: 4 GTT, QHS
     Route: 061
     Dates: start: 20151012, end: 20151122

REACTIONS (8)
  - Incorrect dose administered [Unknown]
  - Eye swelling [Unknown]
  - Dry eye [Unknown]
  - Hypersensitivity [Unknown]
  - Incorrect route of drug administration [Unknown]
  - Chemical injury [Recovered/Resolved]
  - Skin hyperpigmentation [Unknown]
  - Eye irritation [Unknown]

NARRATIVE: CASE EVENT DATE: 20151022
